FAERS Safety Report 26148706 (Version 1)
Quarter: 2025Q4

REPORT INFORMATION
  Report Type: Report from Study
  Country: CA (occurrence: CA)
  Receive Date: 20251212
  Receipt Date: 20251212
  Transmission Date: 20260118
  Serious: Yes (Other)
  Sender: LEO PHARM
  Company Number: CA-LEO Pharma-368303

PATIENT
  Age: 58 Year
  Sex: Female

DRUGS (8)
  1. ADBRY [Suspect]
     Active Substance: TRALOKINUMAB-LDRM
     Indication: Dermatitis atopic
     Dosage: LOADING DOSE. FORMAT: 150 MG/ML PRE-FILLED SYRINGE
     Route: 058
     Dates: start: 20240207
  2. ADBRY [Suspect]
     Active Substance: TRALOKINUMAB-LDRM
     Indication: Dermatitis atopic
     Dosage: MAINTENANCE DOSE. FORMAT: 150 MG/ML PRE-FILLED SYRINGE.
     Route: 058
  3. ASPIRIN [Concomitant]
     Active Substance: ASPIRIN
     Indication: Product used for unknown indication
     Dosage: ONGOING
  4. LORAZEPAM [Concomitant]
     Active Substance: LORAZEPAM
     Indication: Product used for unknown indication
     Dosage: ONGOING
  5. ALBUTEROL [Concomitant]
     Active Substance: ALBUTEROL
     Indication: Product used for unknown indication
     Dosage: ONGOING
  6. Fucidin cream [Concomitant]
     Indication: Product used for unknown indication
     Dosage: DOSE, FREQUENCY, ROUTE OF ADMINISTRATION: ASKED BUT UNKNOWN; START DATE: ASKED BUT UNKNOWN; STOP DAT
  7. TYLENOL [Concomitant]
     Active Substance: ACETAMINOPHEN
     Indication: Product used for unknown indication
     Dosage: TREATMENT: ONGOING?INDICATION, DOSE, FREQUENCY ROUTE OF ADMINISTRATION: ASKED BUT UNKNOWN
  8. ZORYVE [Concomitant]
     Active Substance: ROFLUMILAST
     Indication: Product used for unknown indication
     Dosage: TREATMENT: ONGOING

REACTIONS (17)
  - Ocular hyperaemia [Not Recovered/Not Resolved]
  - Dry mouth [Not Recovered/Not Resolved]
  - Fatigue [Not Recovered/Not Resolved]
  - Rash [Unknown]
  - Insomnia [Not Recovered/Not Resolved]
  - Upper respiratory tract infection [Not Recovered/Not Resolved]
  - Diarrhoea [Not Recovered/Not Resolved]
  - Back pain [Recovering/Resolving]
  - Visual impairment [Unknown]
  - Skin fissures [Unknown]
  - Pruritus [Unknown]
  - Eye irritation [Unknown]
  - Lower respiratory tract infection [Unknown]
  - Frequent bowel movements [Not Recovered/Not Resolved]
  - Irritability [Not Recovered/Not Resolved]
  - Dry eye [Unknown]
  - Lip dry [Not Recovered/Not Resolved]

NARRATIVE: CASE EVENT DATE: 20240201
